FAERS Safety Report 23963396 (Version 1)
Quarter: 2024Q2

REPORT INFORMATION
  Report Type: Spontaneous
  Country: US (occurrence: None)
  Receive Date: 20240610
  Receipt Date: 20240610
  Transmission Date: 20240716
  Serious: Yes (Other)
  Sender: FDA-Public Use
  Company Number: None

PATIENT
  Age: 29 Year
  Sex: Female
  Weight: 114.75 kg

DRUGS (15)
  1. SAXENDA [Suspect]
     Active Substance: LIRAGLUTIDE
     Indication: Obesity
     Dosage: FREQUENCY : DAILY;?
     Route: 058
  2. ALBUTEROLL [Concomitant]
  3. SINGULAIR [Concomitant]
     Active Substance: MONTELUKAST SODIUM
  4. ACYCLOVIR [Concomitant]
     Active Substance: ACYCLOVIR
  5. 0MEPRAZOLE [Concomitant]
  6. LORATAIDINE [Concomitant]
  7. BREZTRI [Interacting]
     Active Substance: BUDESONIDE\FORMOTEROL\GLYCOPYRROLATE
  8. BUSPIRONE [Concomitant]
     Active Substance: BUSPIRONE HYDROCHLORIDE
  9. TRAZODONE [Concomitant]
     Active Substance: TRAZODONE HYDROCHLORIDE
  10. TIZANIDINE [Concomitant]
     Active Substance: TIZANIDINE
  11. GABAPENTIN [Concomitant]
     Active Substance: GABAPENTIN
  12. LYSINE [Concomitant]
     Active Substance: LYSINE
  13. gynostema [Concomitant]
  14. azasteline [Concomitant]
  15. SAXENDA [Concomitant]
     Active Substance: LIRAGLUTIDE

REACTIONS (3)
  - Flatulence [None]
  - Eructation [None]
  - Genital abscess [None]

NARRATIVE: CASE EVENT DATE: 20240602
